FAERS Safety Report 9037869 (Version 1)
Quarter: 2013Q1

REPORT INFORMATION
  Report Type: Spontaneous
  Country: US (occurrence: US)
  Receive Date: 20130129
  Receipt Date: 20130129
  Transmission Date: 20140127
  Serious: Yes (Other)
  Sender: FDA-Public Use
  Company Number: US-BAYER-2013-009244

PATIENT
  Age: 35 Year
  Sex: Female
  Weight: 77.1 kg

DRUGS (4)
  1. YAZ [Suspect]
  2. SYNTHROID [Concomitant]
     Dosage: 0.175 UNK, UNK
  3. NASACORT AQ [Concomitant]
     Dosage: 55 MCG/ACT
     Route: 045
  4. LEVOTHYROXINE SODIUM [Concomitant]

REACTIONS (4)
  - Deep vein thrombosis [Recovered/Resolved]
  - Pulmonary embolism [None]
  - Deep vein thrombosis [None]
  - Contraindication to medical treatment [None]
